FAERS Safety Report 5036079-6 (Version None)
Quarter: 2006Q2

REPORT INFORMATION
  Report Type: 
  Country: None (occurrence: None)
  Receive Date: 20060627
  Receipt Date: 20060616
  Transmission Date: 20061013
  Serious: Yes (Other)
  Sender: FDA-Public Use
  Company Number: US-BOEHRINGER INGELHEIM PHARMACEUTICALS, INC.-2006-DE-03083GD

PATIENT
  Age: 15 Year
  Sex: Male
  Weight: 57 kg

DRUGS (7)
  1. PREDNISONE TAB [Suspect]
     Indication: FOCAL GLOMERULOSCLEROSIS
     Route: 048
  2. PREDNISONE TAB [Suspect]
     Indication: NEPHROTIC SYNDROME
  3. PREDNISONE TAB [Suspect]
     Indication: RENAL FAILURE
  4. CAPTOPRIL [Suspect]
     Indication: FOCAL GLOMERULOSCLEROSIS
  5. CAPTOPRIL [Suspect]
     Indication: NEPHROTIC SYNDROME
  6. CAPTOPRIL [Suspect]
     Indication: RENAL FAILURE
  7. HYDROXYUREA [Concomitant]

REACTIONS (4)
  - CEREBRAL INFARCTION [None]
  - DRUG INEFFECTIVE [None]
  - HYPOAESTHESIA [None]
  - VISION BLURRED [None]
